FAERS Safety Report 6528804-X (Version None)
Quarter: 2010Q1

REPORT INFORMATION
  Report Type: 
  Country: None (occurrence: None)
  Receive Date: 20100106
  Receipt Date: 20091229
  Transmission Date: 20100710
  Serious: No
  Sender: FDA-Public Use
  Company Number: US-ELI_LILLY_AND_COMPANY-US200910004845

PATIENT
  Sex: Male
  Weight: 104.31 kg

DRUGS (17)
  1. BYETTA [Suspect]
     Indication: TYPE 2 DIABETES MELLITUS
     Dosage: 5 UG, 2/D
     Route: 058
     Dates: start: 20050101
  2. BYETTA [Suspect]
     Dosage: 10 UG, 2/D
     Route: 058
  3. METFORMIN HCL [Concomitant]
     Indication: TYPE 2 DIABETES MELLITUS
     Dosage: 1000 MG, 2/D
     Route: 048
  4. BENAZEPRIL W/HYDROCHLOROTHIAZIDE [Concomitant]
     Dosage: UNK, DAILY (1/D)
     Route: 048
  5. COREG [Concomitant]
     Dosage: 12.5 MG, 2/D
     Route: 048
  6. HUMULIN N [Concomitant]
     Indication: TYPE 2 DIABETES MELLITUS
     Dosage: 25 U, EACH MORNING
     Route: 058
  7. HUMULIN N [Concomitant]
     Dosage: 20 U, EACH EVENING
     Route: 058
  8. FINASTERIDE [Concomitant]
     Dosage: 5 MG, DAILY (1/D)
     Route: 048
  9. ACETAZOLAMIDE [Concomitant]
     Dosage: 500 MG, 2/D
     Route: 048
  10. MULTI-VITAMIN [Concomitant]
  11. LIPITOR [Concomitant]
     Dosage: 10 MG, DAILY (1/D)
     Route: 048
  12. NIASPAN [Concomitant]
     Dosage: 1000 MG, DAILY (1/D)
     Route: 048
  13. ASPIRIN [Concomitant]
     Dosage: 81 MG, DAILY (1/D)
     Route: 048
  14. JANUVIA [Concomitant]
     Dosage: 100 MG, DAILY (1/D)
     Route: 048
     Dates: start: 20090601
  15. FLOMAX [Concomitant]
     Dosage: 0.4 MG, DAILY (1/D)
     Route: 048
  16. NORVASC [Concomitant]
     Dates: end: 20090601
  17. MICARDIS [Concomitant]
     Dosage: 80 MG, DAILY (1/D)
     Route: 048
     Dates: end: 20090601

REACTIONS (4)
  - CATARACT [None]
  - OFF LABEL USE [None]
  - VISION BLURRED [None]
  - VISUAL ACUITY REDUCED [None]
